FAERS Safety Report 23748949 (Version 2)
Quarter: 2024Q2

REPORT INFORMATION
  Report Type: Spontaneous
  Country: CA (occurrence: None)
  Receive Date: 20240416
  Receipt Date: 20240424
  Transmission Date: 20240715
  Serious: Yes (Other)
  Sender: FDA-Public Use
  Company Number: 2024A085456

PATIENT
  Age: 66 Year
  Sex: Male

DRUGS (14)
  1. ROSUVASTATIN [Suspect]
     Active Substance: ROSUVASTATIN
  2. LIDOCAINE HYDROCHLORIDE [Suspect]
     Active Substance: LIDOCAINE HYDROCHLORIDE
  3. ACETIAMINE\ASPIRIN [Suspect]
     Active Substance: ACETIAMINE\ASPIRIN
  4. CIPROFLOXACIN [Suspect]
     Active Substance: CIPROFLOXACIN
  5. DIMENHYDRINATE [Suspect]
     Active Substance: DIMENHYDRINATE
  6. FILGRASTIM [Suspect]
     Active Substance: FILGRASTIM
  7. FLUCONAZOLE [Suspect]
     Active Substance: FLUCONAZOLE
  8. MAGNESIUM OXIDE [Suspect]
     Active Substance: MAGNESIUM OXIDE
  9. METFORMIN [Suspect]
     Active Substance: METFORMIN HYDROCHLORIDE
  10. OLANZAPINE [Suspect]
     Active Substance: OLANZAPINE
  11. PANTOPRAZOLE [Suspect]
     Active Substance: PANTOPRAZOLE
  12. POTASSIUM CHLORIDE [Suspect]
     Active Substance: POTASSIUM CHLORIDE
  13. AMLODIPINE BESYLATE\TELMISARTAN [Suspect]
     Active Substance: AMLODIPINE BESYLATE\TELMISARTAN
  14. VALACYCLOVIR [Suspect]
     Active Substance: VALACYCLOVIR HYDROCHLORIDE

REACTIONS (1)
  - Febrile neutropenia [Unknown]
